FAERS Safety Report 8220027-1 (Version None)
Quarter: 2012Q1

REPORT INFORMATION
  Report Type: 
  Country: None (occurrence: None)
  Receive Date: 20120320
  Receipt Date: 20111025
  Transmission Date: 20120608
  Serious: Yes (Other)
  Sender: FDA-Public Use
  Company Number: US-ROCHE-1007914

PATIENT
  Sex: Female

DRUGS (7)
  1. XOLAIR [Suspect]
  2. XOLAIR [Suspect]
     Indication: ASTHMA
     Route: 058
     Dates: start: 20110627
  3. SINGULAIR [Concomitant]
  4. OMNARIS [Concomitant]
  5. ASTELIN [Concomitant]
  6. SYMBICORT [Concomitant]
  7. ALBUTEROL [Concomitant]

REACTIONS (4)
  - SWELLING FACE [None]
  - DYSPHAGIA [None]
  - URTICARIA [None]
  - DYSPNOEA [None]
